FAERS Safety Report 7555323-4 (Version None)
Quarter: 2011Q2

REPORT INFORMATION
  Report Type: 
  Country: None (occurrence: None)
  Receive Date: 20110617
  Receipt Date: 20110606
  Transmission Date: 20111010
  Serious: Yes (Other)
  Sender: FDA-Public Use
  Company Number: PHHY2011DE51212

PATIENT
  Sex: Male

DRUGS (1)
  1. DICLOFENAC SODIUM [Suspect]
     Indication: SPINAL COLUMN STENOSIS
     Dosage: UNK

REACTIONS (2)
  - ATRIAL FIBRILLATION [None]
  - BLOOD CREATININE INCREASED [None]
